FAERS Safety Report 23587889 (Version 1)
Quarter: 2024Q1

REPORT INFORMATION
  Report Type: Spontaneous
  Country: FR (occurrence: FR)
  Receive Date: 20240301
  Receipt Date: 20240301
  Transmission Date: 20240410
  Serious: Yes (Other)
  Sender: FDA-Public Use
  Company Number: None

PATIENT
  Age: 74 Year
  Sex: Male

DRUGS (24)
  1. ALLOPURINOL [Suspect]
     Active Substance: ALLOPURINOL
     Indication: Gout
     Route: 048
  2. GABAPENTIN [Suspect]
     Active Substance: GABAPENTIN
     Indication: Neuralgia
     Dosage: GABAPENTINE
     Route: 048
  3. FENTANYL [Suspect]
     Active Substance: FENTANYL\FENTANYL CITRATE
     Indication: Pain
     Dosage: 50 MICROGRAMS/HOUR (8.4 MG/21 CM?), TRANSDERMAL PATCH
     Route: 062
  4. MOLSIDOMINE [Suspect]
     Active Substance: MOLSIDOMINE
     Indication: Angina pectoris
     Route: 048
  5. ESOMEPRAZOLE [Suspect]
     Active Substance: ESOMEPRAZOLE
     Indication: Prophylaxis
     Route: 048
  6. ALPRAZOLAM [Suspect]
     Active Substance: ALPRAZOLAM
     Indication: Mixed anxiety and depressive disorder
     Route: 048
  7. MORPHINE [Suspect]
     Active Substance: MORPHINE
     Indication: Pain
     Route: 048
  8. AMOXICILLIN\CLAVULANATE POTASSIUM [Suspect]
     Active Substance: AMOXICILLIN\CLAVULANATE POTASSIUM
     Indication: Lung disorder
     Route: 048
     Dates: start: 20240102, end: 20240105
  9. ELIQUIS [Suspect]
     Active Substance: APIXABAN
     Indication: Thrombosis prophylaxis
     Route: 048
  10. FERINJECT [Suspect]
     Active Substance: FERRIC CARBOXYMALTOSE
     Indication: Iron deficiency anaemia
     Route: 042
     Dates: start: 20240104, end: 20240104
  11. ATORVASTATIN [Suspect]
     Active Substance: ATORVASTATIN
     Indication: Dyslipidaemia
     Dosage: ATORVASTATINE
     Route: 048
  12. FLUOXETINE [Suspect]
     Active Substance: FLUOXETINE HYDROCHLORIDE
     Indication: Mixed anxiety and depressive disorder
     Dosage: BASE
     Route: 048
  13. LEVETIRACETAM [Suspect]
     Active Substance: LEVETIRACETAM
     Indication: Neuralgia
     Route: 048
  14. ALFUZOSIN HYDROCHLORIDE [Suspect]
     Active Substance: ALFUZOSIN HYDROCHLORIDE
     Indication: Benign prostatic hyperplasia
     Dosage: ALFUZOSINE (CHLORHYDRATE D^)
     Route: 048
  15. CEFTRIAXONE [Suspect]
     Active Substance: CEFTRIAXONE\CEFTRIAXONE SODIUM
     Indication: Lung disorder
     Dosage: BASE
     Route: 042
     Dates: start: 20231227, end: 20240102
  16. FUROSEMIDE [Suspect]
     Active Substance: FUROSEMIDE
     Indication: Oedema
     Route: 048
     Dates: start: 20240102
  17. FUROSEMIDE [Suspect]
     Active Substance: FUROSEMIDE
     Indication: Oedema
     Route: 048
     Dates: end: 20240102
  18. BETAXOLOL [Suspect]
     Active Substance: BETAXOLOL\BETAXOLOL HYDROCHLORIDE
     Indication: Hypertension
     Dosage: BASE
     Route: 048
  19. PLAQUENIL [Suspect]
     Active Substance: HYDROXYCHLOROQUINE SULFATE
     Indication: Q fever
     Route: 048
  20. POTASSIUM CHLORIDE [Suspect]
     Active Substance: POTASSIUM CHLORIDE
     Indication: Hypokalaemia
     Route: 048
  21. ACETAMINOPHEN [Suspect]
     Active Substance: ACETAMINOPHEN
     Indication: Pain
     Route: 048
  22. SPIRAMYCIN [Suspect]
     Active Substance: SPIRAMYCIN
     Indication: Lung disorder
     Dosage: SPIRAMYCINE
     Route: 042
     Dates: start: 20231227, end: 20240102
  23. FOLIC ACID [Suspect]
     Active Substance: FOLIC ACID
     Indication: Hypovitaminosis
     Route: 048
  24. MOVICOL [Suspect]
     Active Substance: POLYETHYLENE GLYCOL 3350\POTASSIUM CHLORIDE\SODIUM BICARBONATE\SODIUM CHLORIDE
     Indication: Constipation
     Dosage: 1 TO 3
     Route: 048

REACTIONS (1)
  - Purpura [Not Recovered/Not Resolved]

NARRATIVE: CASE EVENT DATE: 20240105
